FAERS Safety Report 4902573-9 (Version None)
Quarter: 2006Q1

REPORT INFORMATION
  Report Type: 
  Country: None (occurrence: None)
  Receive Date: 20060202
  Receipt Date: 20060119
  Transmission Date: 20060701
  Serious: Yes (Hospitalization)
  Sender: FDA-Public Use
  Company Number: S06-SWI-00096-01

PATIENT
  Age: 57 Year
  Sex: Female

DRUGS (6)
  1. CIPRALEX (ESCITALOPRAM) [Suspect]
     Dosage: 10 MG QD PO
     Route: 048
     Dates: end: 20051023
  2. ZYPREXA [Suspect]
     Dosage: 5 MG BID PO
     Route: 048
     Dates: end: 20051023
  3. ENALAPRIL MALEATE [Concomitant]
  4. FLUVASTATIN [Concomitant]
  5. TEMESTA (LORAZEPAM) [Concomitant]
  6. PANTOPRAZOLE SODIUM [Concomitant]

REACTIONS (4)
  - CONVULSION [None]
  - FLUSHING [None]
  - INAPPROPRIATE ANTIDIURETIC HORMONE SECRETION [None]
  - RESPIRATION ABNORMAL [None]
